FAERS Safety Report 7128236-X (Version None)
Quarter: 2010Q4

REPORT INFORMATION
  Report Type: 
  Country: None (occurrence: None)
  Receive Date: 20101103
  Receipt Date: 20101025
  Transmission Date: 20110411
  Serious: Yes (Hospitalization, Other)
  Sender: FDA-Public Use
  Company Number: 2010SP050242

PATIENT
  Age: 40 Year
  Sex: Female
  Weight: 113.3993 kg

DRUGS (1)
  1. IMPLANON [Suspect]
     Indication: CONTRACEPTION
     Dosage: 1 DF
     Dates: start: 20100831

REACTIONS (2)
  - SINUSITIS [None]
  - SYNCOPE [None]
